FAERS Safety Report 16342134 (Version 2)
Quarter: 2019Q2

REPORT INFORMATION
  Report Type: Spontaneous
  Country: NL (occurrence: NL)
  Receive Date: 20190522
  Receipt Date: 20190524
  Transmission Date: 20190711
  Serious: Yes (Other)
  Sender: FDA-Public Use
  Company Number: NL-TEVA-2019-NL-1054653

PATIENT
  Sex: Female

DRUGS (4)
  1. ENALAPRIL MALEAT AUROBINDO [Suspect]
     Active Substance: ENALAPRIL MALEATE
     Indication: PRODUCT USED FOR UNKNOWN INDICATION
     Route: 065
  2. METOPROLOLSUCCINAT SANDOZ [Suspect]
     Active Substance: METOPROLOL SUCCINATE
     Indication: PRODUCT USED FOR UNKNOWN INDICATION
     Route: 065
  3. METFORMIN HCL [Suspect]
     Active Substance: METFORMIN HYDROCHLORIDE
     Indication: PRODUCT USED FOR UNKNOWN INDICATION
     Route: 065
  4. OMEPRAZOL AURO 40 MG GASTRO-RESISTANT CAPSULES [Suspect]
     Active Substance: OMEPRAZOLE
     Indication: PRODUCT USED FOR UNKNOWN INDICATION
     Route: 065

REACTIONS (7)
  - Pain [Unknown]
  - Therapeutic response unexpected [Unknown]
  - Anxiety [Unknown]
  - Hypertension [Unknown]
  - Palpitations [Unknown]
  - Peripheral swelling [Unknown]
  - Diarrhoea [Unknown]
